FAERS Safety Report 17536960 (Version 1)
Quarter: 2020Q1

REPORT INFORMATION
  Report Type: Spontaneous
  Country: ES (occurrence: ES)
  Receive Date: 20200313
  Receipt Date: 20200313
  Transmission Date: 20200409
  Serious: Yes (Other)
  Sender: FDA-Public Use
  Company Number: ES-AMERICAN REGENT INC-20180382

PATIENT
  Age: 39 Year
  Sex: Male

DRUGS (23)
  1. VITAMIN B12 [Concomitant]
     Active Substance: CYANOCOBALAMIN
     Indication: PRODUCT USED FOR UNKNOWN INDICATION
     Dosage: UNK
     Route: 065
  2. INFLIXIMAB [Concomitant]
     Active Substance: INFLIXIMAB
     Dosage: 0.1786 MILLIGRAM/KILOGRAM/DAY (10 MILLIGRAM PER KILOGRAM PER DAY,1 IN 8 WK)
     Route: 065
     Dates: start: 201505
  3. FERINJECT [Suspect]
     Active Substance: FERRIC CARBOXYMALTOSE
     Dosage: 1000 MILLIGRAM, 1 IN 3 M
     Route: 042
     Dates: start: 2013
  4. IRON [Concomitant]
     Active Substance: IRON
     Dosage: UNK
     Route: 048
     Dates: start: 201101
  5. INFLIXIMAB [Concomitant]
     Active Substance: INFLIXIMAB
     Dosage: UNK
     Dates: start: 201602
  6. ADALIMUMAB [Concomitant]
     Active Substance: ADALIMUMAB
     Dosage: 40 MILLIGRAM, 1 IN 1 WK
     Route: 058
     Dates: start: 201003
  7. ADALIMUMAB [Concomitant]
     Active Substance: ADALIMUMAB
     Dosage: UNK
     Route: 065
     Dates: start: 201202
  8. IRON [Concomitant]
     Active Substance: IRON
     Indication: PRODUCT USED FOR UNKNOWN INDICATION
     Dosage: UNK
     Route: 042
     Dates: start: 200805
  9. INFLIXIMAB [Concomitant]
     Active Substance: INFLIXIMAB
     Dosage: 0.238 MILLIGRAM/KILOGRAM/DAY (10 MILLIGRAM PER KILOGRAM PER DAY,1 IN 6 WK)
     Route: 065
     Dates: start: 201505
  10. ADALIMUMAB [Concomitant]
     Active Substance: ADALIMUMAB
     Dosage: 40 MILLIGRAM
     Route: 065
     Dates: start: 201302
  11. IRON [Concomitant]
     Active Substance: IRON
     Dosage: UNK
     Route: 048
     Dates: start: 201008
  12. IRON [Concomitant]
     Active Substance: IRON
     Dosage: UNK
     Route: 042
     Dates: start: 201202
  13. INFLIXIMAB [Concomitant]
     Active Substance: INFLIXIMAB
     Dosage: 0.1786 MILLIGRAM/KILOGRAM/MINUTE (10 MILLIGRAM PER KILOGRAM PER MINUTE, 1 IN 8 WK)
     Route: 065
     Dates: start: 2014
  14. FERINJECT [Suspect]
     Active Substance: FERRIC CARBOXYMALTOSE
     Dosage: 1000 MILLIGRAM, 1 IN 2 M
     Route: 042
     Dates: start: 20160904
  15. ADALIMUMAB [Concomitant]
     Active Substance: ADALIMUMAB
     Indication: PRODUCT USED FOR UNKNOWN INDICATION
     Dosage: UNK
     Route: 065
     Dates: start: 200904
  16. ADALIMUMAB [Concomitant]
     Active Substance: ADALIMUMAB
     Dosage: UNK
     Route: 065
     Dates: start: 201304
  17. INFLIXIMAB [Concomitant]
     Active Substance: INFLIXIMAB
     Indication: PRODUCT USED FOR UNKNOWN INDICATION
     Dosage: 5 MILLIGRAM/KILOGRAM/MINUTE
     Route: 065
  18. IRON [Concomitant]
     Active Substance: IRON
     Dosage: UNK
     Route: 048
     Dates: start: 200904
  19. IRON [Concomitant]
     Active Substance: IRON
     Dosage: UNK
     Route: 042
     Dates: start: 201101
  20. FERINJECT [Suspect]
     Active Substance: FERRIC CARBOXYMALTOSE
     Dosage: 1000 MILLIGRAM, 1 IN 3 M
     Route: 042
     Dates: start: 2012
  21. FERINJECT [Suspect]
     Active Substance: FERRIC CARBOXYMALTOSE
     Dosage: 1000 MILLIGRAM, 1 IN 2 M
     Route: 042
     Dates: start: 201403
  22. STELARA [Concomitant]
     Active Substance: USTEKINUMAB
     Indication: PRODUCT USED FOR UNKNOWN INDICATION
     Dosage: 1.6071 MILLIGRAM  (90 MG,1 IN 8 WK)
     Route: 058
     Dates: start: 20171025
  23. FERINJECT [Suspect]
     Active Substance: FERRIC CARBOXYMALTOSE
     Indication: PRODUCT USED FOR UNKNOWN INDICATION
     Dosage: UNK
     Route: 042
     Dates: start: 20111127

REACTIONS (12)
  - Ulcer [Unknown]
  - Inflammation [Unknown]
  - C-reactive protein increased [Unknown]
  - Oral herpes [Unknown]
  - Ileostomy closure [Unknown]
  - Inflammatory bowel disease [Unknown]
  - Hypophosphataemia [Unknown]
  - Infrequent bowel movements [Unknown]
  - Abdominal pain [Unknown]
  - Hypoalbuminaemia [Unknown]
  - Hypoproteinaemia [Unknown]
  - Pyrexia [Unknown]

NARRATIVE: CASE EVENT DATE: 201310
